FAERS Safety Report 20889000 (Version 1)
Quarter: 2022Q2

REPORT INFORMATION
  Report Type: Spontaneous
  Country: US (occurrence: US)
  Receive Date: 20220530
  Receipt Date: 20220530
  Transmission Date: 20220721
  Serious: No
  Sender: FDA-Public Use
  Company Number: US-ORGANON-O2205USA001484

PATIENT
  Sex: Female

DRUGS (2)
  1. ETHINYL ESTRADIOL\ETONOGESTREL [Suspect]
     Active Substance: ETHINYL ESTRADIOL\ETONOGESTREL
     Dosage: 0.12MG/0.015MG, 1 (3 RINGS) (66993-605-36)
     Route: 067
  2. ETHINYL ESTRADIOL\ETONOGESTREL [Suspect]
     Active Substance: ETHINYL ESTRADIOL\ETONOGESTREL
     Dosage: 0.12MG/0.015MG, 1 (3 RINGS) (66993-605-36)
     Route: 067

REACTIONS (4)
  - Insomnia [Unknown]
  - Fatigue [Unknown]
  - Dysmenorrhoea [Unknown]
  - Headache [Unknown]
